FAERS Safety Report 4639934-1 (Version None)
Quarter: 2005Q2

REPORT INFORMATION
  Report Type: 
  Country: None (occurrence: None)
  Receive Date: 20050415
  Receipt Date: 20050415
  Transmission Date: 20051028
  Serious: Yes (Other)
  Sender: FDA-Public Use
  Company Number: None

PATIENT
  Age: 50 Year
  Sex: Male
  Weight: 97.977 kg

DRUGS (1)
  1. GABAPENTIN [Suspect]
     Indication: NEUROPATHY
     Dosage: 800MG  ONCE QHS
     Dates: start: 20030101, end: 20050101

REACTIONS (4)
  - DRY SKIN [None]
  - INSOMNIA [None]
  - PRURITUS [None]
  - RASH [None]
